FAERS Safety Report 5310856-6 (Version None)
Quarter: 2007Q1

REPORT INFORMATION
  Report Type: 
  Country: None (occurrence: None)
  Receive Date: 20070201
  Receipt Date: 20070118
  Transmission Date: 20070707
  Serious: Yes (Other)
  Sender: FDA-Public Use
  Company Number: US-2006-036957

PATIENT
  Age: 26 Year
  Sex: Female
  Weight: 52 kg

DRUGS (3)
  1. MIRENA [Suspect]
     Indication: CONTRACEPTION
     Dosage: 20 UG/DAY, CONT, INTRA-UTERINE
     Route: 015
     Dates: start: 20020801
  2. ORTHO TRI-CYCLEN [Suspect]
     Dosage: 1 TAB(S), 1X/DAY, ORAL
     Route: 048
  3. LEXAPRO [Concomitant]

REACTIONS (7)
  - ACNE [None]
  - ALOPECIA [None]
  - AMENORRHOEA [None]
  - ECTOPIC PREGNANCY [None]
  - HOT FLUSH [None]
  - INTRA-UTERINE CONTRACEPTIVE DEVICE EXPELLED [None]
  - VAGINAL INFECTION [None]
